FAERS Safety Report 9409633 (Version 2)
Quarter: 2013Q3

REPORT INFORMATION
  Report Type: Spontaneous
  Country: GB (occurrence: GB)
  Receive Date: 20130719
  Receipt Date: 20130802
  Transmission Date: 20140515
  Serious: Yes (Other)
  Sender: FDA-Public Use
  Company Number: PHFR2013GB003978

PATIENT
  Sex: Male

DRUGS (3)
  1. CLOZARIL [Suspect]
     Indication: SCHIZOPHRENIA
     Dosage: UNK
     Route: 048
     Dates: start: 20130621, end: 20130706
  2. CLOZARIL [Suspect]
     Dosage: 75 MG, BID
  3. CLOZARIL [Suspect]
     Dosage: UNK
     Dates: end: 20130720

REACTIONS (5)
  - Nephritis [Unknown]
  - Body temperature increased [Not Recovered/Not Resolved]
  - Hypersensitivity [Unknown]
  - Rash [Unknown]
  - Cough [Unknown]
